FAERS Safety Report 9751587 (Version 1)
Quarter: 2013Q4

REPORT INFORMATION
  Report Type: Report from Study
  Country: US (occurrence: US)
  Receive Date: 20131212
  Receipt Date: 20131212
  Transmission Date: 20140711
  Serious: Yes (Death, Hospitalization, Other)
  Sender: FDA-Public Use
  Company Number: US-ABBVIE-13P-163-1177029-00

PATIENT
  Sex: Female
  Weight: 45.4 kg

DRUGS (5)
  1. HUMIRA [Suspect]
     Indication: PSORIASIS
     Dates: end: 2013
  2. PLAVIX [Suspect]
     Indication: CAROTID ARTERY OCCLUSION
  3. ALBUTEROL [Concomitant]
     Indication: ASTHMA
  4. UNKNOWN KIDNEY DRUG [Concomitant]
     Indication: RENAL FAILURE
  5. UNKNOWN STEROIDS [Concomitant]
     Indication: GOUT

REACTIONS (18)
  - Renal failure [Fatal]
  - Bone marrow failure [Recovered/Resolved]
  - Fatigue [Recovered/Resolved]
  - Blood calcium increased [Recovered/Resolved]
  - Dehydration [Recovered/Resolved]
  - Oral fungal infection [Fatal]
  - Dysphagia [Recovered/Resolved]
  - Epistaxis [Fatal]
  - Haematochezia [Fatal]
  - Full blood count decreased [Fatal]
  - Apnoea [Fatal]
  - Infection [Fatal]
  - Rhinorrhoea [Recovered/Resolved]
  - Cough [Recovered/Resolved]
  - Fatigue [Recovered/Resolved]
  - Weight decreased [Not Recovered/Not Resolved]
  - Pulmonary function test decreased [Fatal]
  - Blood disorder [Fatal]
